FAERS Safety Report 5382928-1 (Version None)
Quarter: 2007Q3

REPORT INFORMATION
  Report Type: 
  Country: None (occurrence: None)
  Receive Date: 20070705
  Receipt Date: 20070705
  Transmission Date: 20080115
  Serious: Yes (Life-Threatening, Hospitalization)
  Sender: FDA-Public Use
  Company Number: None

PATIENT
  Age: 56 Year
  Sex: Male
  Weight: 110.6777 kg

DRUGS (1)
  1. ABILIFY [Suspect]
     Indication: NERVOUS SYSTEM DISORDER
     Dosage: 5 MG 1 DAILY
     Dates: start: 20070622, end: 20070622

REACTIONS (8)
  - ABASIA [None]
  - ACTIVITIES OF DAILY LIVING IMPAIRED [None]
  - CONFUSIONAL STATE [None]
  - CONVULSION [None]
  - CYSTITIS [None]
  - IMPAIRED SELF-CARE [None]
  - RESPIRATORY DISORDER [None]
  - TREMOR [None]
